FAERS Safety Report 8988093 (Version 2)
Quarter: 2013Q2

REPORT INFORMATION
  Report Type: Spontaneous
  Country: GB (occurrence: GB)
  Receive Date: 20121227
  Receipt Date: 20130410
  Transmission Date: 20140414
  Serious: Yes (Other)
  Sender: FDA-Public Use
  Company Number: GB-BANPHARM-20120486

PATIENT
  Age: 80 Year
  Sex: Female

DRUGS (4)
  1. IBUPROFEN UNKNOWN PRODUCT [Suspect]
     Indication: ARTHRALGIA
     Dosage: 400 MG, TID,
     Route: 048
  2. DORZOLAMIDE [Concomitant]
     Indication: GLAUCOMA
     Dates: start: 1999
  3. LATANOPROST [Concomitant]
     Indication: GLAUCOMA
     Dates: start: 1999
  4. LEVOBUNOLO HYDROCHLORIDE [Concomitant]
     Indication: GLAUCOMA

REACTIONS (1)
  - Acute generalised exanthematous pustulosis [Recovered/Resolved]
